FAERS Safety Report 11947902 (Version 3)
Quarter: 2016Q2

REPORT INFORMATION
  Report Type: Spontaneous
  Country: US (occurrence: US)
  Receive Date: 20160125
  Receipt Date: 20160616
  Transmission Date: 20160815
  Serious: Yes (Life-Threatening, Hospitalization)
  Sender: FDA-Public Use
  Company Number: US-BAYER-2016-014046

PATIENT
  Age: 29 Year
  Sex: Female
  Weight: 72.56 kg

DRUGS (2)
  1. MIRENA [Suspect]
     Active Substance: LEVONORGESTREL
     Indication: CONTRACEPTION
     Dosage: 20 MCG/24HR, CONT
     Route: 015
     Dates: start: 20120827, end: 20140218
  2. CYTOTEC [Concomitant]
     Active Substance: MISOPROSTOL

REACTIONS (8)
  - Infection [None]
  - Pelvic pain [None]
  - Device issue [None]
  - Device use issue [None]
  - Scar [None]
  - Uterine perforation [None]
  - Abdominal pain [None]
  - Depression [None]

NARRATIVE: CASE EVENT DATE: 2014
